FAERS Safety Report 10331357 (Version 1)
Quarter: 2014Q3

REPORT INFORMATION
  Report Type: Spontaneous
  Country: US (occurrence: None)
  Receive Date: 20140721
  Receipt Date: 20140721
  Transmission Date: 20150326
  Serious: Yes (Life-Threatening)
  Sender: FDA-Public Use
  Company Number: None

PATIENT
  Age: 49 Year
  Sex: Female
  Weight: 74 kg

DRUGS (11)
  1. ALBUTEROL. [Concomitant]
     Active Substance: ALBUTEROL
  2. MORPHINE (MS CONTIN) [Concomitant]
  3. CALCIUM-VITAMIN D [Concomitant]
  4. CYMBALTA [Concomitant]
     Active Substance: DULOXETINE HYDROCHLORIDE
  5. MONTELUKAST (SINGULAIR) [Concomitant]
  6. TIZANIDINE [Suspect]
     Active Substance: TIZANIDINE
     Indication: BACK PAIN
     Dosage: 4- 8 MG Q 6H PRN ORAL
     Route: 048
     Dates: start: 20090612, end: 20140717
  7. TIZANIDINE [Suspect]
     Active Substance: TIZANIDINE
     Indication: MUSCLE SPASMS
     Dosage: 4- 8 MG Q 6H PRN ORAL
     Route: 048
     Dates: start: 20090612, end: 20140717
  8. CLONAZEPAM(KLONOPIN) [Concomitant]
  9. OXYCODONE-ACETAMINOPHEN (PERCOCET) [Concomitant]
  10. ESTROGENS, CONJUGATED (PREMARIN) [Concomitant]
  11. MULTI-VITAMIN [Concomitant]
     Active Substance: .ALPHA.-TOCOPHEROL ACETATE, DL-\ASCORBIC ACID\CYANOCOBALAMIN\FLUORIDE ION\FOLIC ACID\NIACIN\PYRIDOXINE\RIBOFLAVIN\THIAMINE\VITAMIN A\VITAMIN D

REACTIONS (10)
  - Thyroid disorder [None]
  - Systemic lupus erythematosus [None]
  - Posterior reversible encephalopathy syndrome [None]
  - Blindness [None]
  - Drug withdrawal syndrome [None]
  - Insomnia [None]
  - Vision blurred [None]
  - Headache [None]
  - Dizziness [None]
  - Hypertensive emergency [None]

NARRATIVE: CASE EVENT DATE: 20140713
